FAERS Safety Report 9891721 (Version 2)
Quarter: 2014Q2

REPORT INFORMATION
  Report Type: Spontaneous
  Country: JP (occurrence: JP)
  Receive Date: 20140212
  Receipt Date: 20140605
  Transmission Date: 20141212
  Serious: Yes (Life-Threatening, Other)
  Sender: FDA-Public Use
  Company Number: JP-ROCHE-1344870

PATIENT
  Sex: Female
  Weight: 54 kg

DRUGS (4)
  1. ACTEMRA [Suspect]
     Indication: RHEUMATOID ARTHRITIS
     Route: 041
     Dates: start: 20130704
  2. RHEUMATREX [Concomitant]
     Indication: RHEUMATOID ARTHRITIS
     Route: 048
     Dates: start: 200811
  3. FORTEO [Concomitant]
     Dosage: DOSAGE IS UNCERTAIN.
     Route: 058
     Dates: start: 201207
  4. TAKEPRON [Concomitant]
     Route: 048
     Dates: start: 200811

REACTIONS (2)
  - Infectious pleural effusion [Recovered/Resolved]
  - Pleurisy [Recovered/Resolved]
